FAERS Safety Report 9340056 (Version 3)
Quarter: 2013Q3

REPORT INFORMATION
  Report Type: Spontaneous
  Country: GB (occurrence: None)
  Receive Date: 20130605
  Receipt Date: 20130716
  Transmission Date: 20140515
  Serious: Yes (Hospitalization)
  Sender: FDA-Public Use
  Company Number: 1728905

PATIENT
  Age: 73 Year
  Sex: Female
  Weight: 88.9 kg

DRUGS (8)
  1. VINCRISTINE SULFATE [Suspect]
     Indication: B-CELL LYMPHOMA
     Route: 040
  2. RITUXIMAB [Concomitant]
  3. CYCLOPHOSPHAMIDE [Concomitant]
     Indication: B-CELL LYMPHOMA
  4. PREDNISONE [Concomitant]
  5. AMLODIPINE [Concomitant]
  6. SIMVASTATIN [Concomitant]
  7. MORPHINE SULFATE [Concomitant]
  8. DOMPERIDONE [Concomitant]

REACTIONS (4)
  - Embolism [None]
  - Constipation [None]
  - Ankle fracture [None]
  - Injury [None]
